FAERS Safety Report 14282351 (Version 1)
Quarter: 2017Q4

REPORT INFORMATION
  Report Type: Spontaneous
  Country: US (occurrence: US)
  Receive Date: 20171213
  Receipt Date: 20171213
  Transmission Date: 20180321
  Serious: Yes (Death)
  Sender: FDA-Public Use
  Company Number: US-CELGENEUS-USA-20171203592

PATIENT
  Sex: Male

DRUGS (8)
  1. POMALYST [Suspect]
     Active Substance: POMALIDOMIDE
     Indication: NON-HODGKIN^S LYMPHOMA
  2. OLOPATADINE. [Concomitant]
     Active Substance: OLOPATADINE
     Indication: CONJUNCTIVITIS ALLERGIC
     Dosage: 0.2 PERCENT
     Route: 065
     Dates: start: 20170619, end: 20171021
  3. CARAFATE [Concomitant]
     Active Substance: SUCRALFATE
     Indication: DUODENAL ULCER
     Dosage: 1GM/10ML
     Route: 065
     Dates: start: 20170816, end: 20170825
  4. CLINDAMYCIN. [Concomitant]
     Active Substance: CLINDAMYCIN
     Indication: PRODUCT USED FOR UNKNOWN INDICATION
     Dosage: 1 PERCENT
     Route: 065
     Dates: start: 20170428, end: 20171007
  5. POMALYST [Suspect]
     Active Substance: POMALIDOMIDE
     Indication: PLASMA CELL MYELOMA
     Dosage: 4 MILLIGRAM
     Route: 048
     Dates: start: 20171011
  6. METOCLOPRAMIDE. [Concomitant]
     Active Substance: METOCLOPRAMIDE
     Indication: GASTROOESOPHAGEAL REFLUX DISEASE
     Dosage: 10 MILLIGRAM
     Route: 065
     Dates: start: 20170905, end: 20171104
  7. ZOLPIDEM [Concomitant]
     Active Substance: ZOLPIDEM\ZOLPIDEM TARTRATE
     Indication: INSOMNIA
     Dosage: 10 MILLIGRAM
     Route: 065
     Dates: start: 20170823, end: 20171022
  8. RESTASIS [Concomitant]
     Active Substance: CYCLOSPORINE
     Indication: DRY EYE
     Dosage: 0.05 PERCENT
     Route: 065
     Dates: start: 20170303

REACTIONS (1)
  - Death [Fatal]

NARRATIVE: CASE EVENT DATE: 2017
